FAERS Safety Report 18038452 (Version 1)
Quarter: 2020Q3

REPORT INFORMATION
  Report Type: Spontaneous
  Country: IE (occurrence: IE)
  Receive Date: 20200717
  Receipt Date: 20200717
  Transmission Date: 20201103
  Serious: Yes (Death)
  Sender: FDA-Public Use
  Company Number: IE-TEVA-2020-IE-1800628

PATIENT
  Age: 19 Year
  Sex: Female

DRUGS (7)
  1. NORDIAZEPAM [Suspect]
     Active Substance: NORDAZEPAM
     Route: 065
  2. OLANZAPINE (G) [Suspect]
     Active Substance: OLANZAPINE
     Route: 065
  3. DIAZEPAM (G) [Suspect]
     Active Substance: DIAZEPAM
     Route: 065
  4. XANAX [Suspect]
     Active Substance: ALPRAZOLAM
     Dosage: UNK
     Route: 065
  5. METHADONE [Suspect]
     Active Substance: METHADONE HYDROCHLORIDE
     Route: 065
  6. EDDP (2?ETHYLIDENE?1, 5?DIMETHYL?3, 3?DIPHENYLPYRROLIDINE) [Suspect]
     Active Substance: METHADONE HYDROCHLORIDE
     Route: 065
  7. BENZOYLECGONINE [Suspect]
     Active Substance: BENZOYLECGONINE
     Route: 065

REACTIONS (2)
  - Suspected counterfeit product [Fatal]
  - Death [Fatal]

NARRATIVE: CASE EVENT DATE: 20200427
